FAERS Safety Report 7657382-7 (Version None)
Quarter: 2011Q3

REPORT INFORMATION
  Report Type: 
  Country: None (occurrence: None)
  Receive Date: 20110804
  Receipt Date: 20110802
  Transmission Date: 20111222
  Serious: Yes (Death, Hospitalization)
  Sender: FDA-Public Use
  Company Number: PHHY2011GR69546

PATIENT
  Age: 42 Year
  Sex: Female

DRUGS (2)
  1. PSYCHIATRIC THERAPY [Concomitant]
     Dosage: UNK UKN, UNK
     Route: 065
  2. EXJADE [Suspect]
     Indication: THALASSAEMIA BETA
     Dosage: UNK UKN, UNK
     Route: 065

REACTIONS (4)
  - HYPOKALAEMIA [None]
  - RENAL FAILURE [None]
  - DEATH [None]
  - PYREXIA [None]
